FAERS Safety Report 8382618-7 (Version None)
Quarter: 2012Q2

REPORT INFORMATION
  Report Type: 
  Country: None (occurrence: None)
  Receive Date: 20120524
  Receipt Date: 20120521
  Transmission Date: 20120825
  Serious: Yes (Other)
  Sender: FDA-Public Use
  Company Number: US-ABBOTT-12P-163-0936895-00

PATIENT
  Sex: Female
  Weight: 52.21 kg

DRUGS (23)
  1. ADVAIR DISKUS 100/50 [Concomitant]
     Indication: EMPHYSEMA
  2. VICODIN [Suspect]
     Indication: PRODUCT USED FOR UNKNOWN INDICATION
     Dosage: UNKNOWN
  3. BUSPAR [Suspect]
     Indication: ANXIETY
  4. SPIRIVA [Concomitant]
     Indication: EMPHYSEMA
  5. POTASSIUM CHLORIDE [Concomitant]
     Indication: PRODUCT USED FOR UNKNOWN INDICATION
  6. VERAMYST [Concomitant]
     Indication: HYPERSENSITIVITY
     Dosage: DAILY
  7. COMBIVENT [Concomitant]
     Indication: CHRONIC OBSTRUCTIVE PULMONARY DISEASE
  8. COMBIVENT [Concomitant]
     Indication: EMPHYSEMA
  9. LORATADINE [Concomitant]
     Indication: HYPERSENSITIVITY
  10. CODEINE SULFATE [Suspect]
     Indication: PRODUCT USED FOR UNKNOWN INDICATION
  11. CHANTIX [Suspect]
     Indication: SMOKING CESSATION THERAPY
     Dosage: UNKNOWN
     Dates: start: 20070101
  12. WELLBUTRIN [Suspect]
     Indication: PRODUCT USED FOR UNKNOWN INDICATION
     Dosage: UNKNOWN
  13. LISINOPRIL [Concomitant]
     Dosage: DAILY: 20MG + 10MG AT NIGHT
  14. SPIRIVA [Concomitant]
     Indication: CHRONIC OBSTRUCTIVE PULMONARY DISEASE
     Dosage: UNKNOWN
  15. MULTI-VITAMINS [Concomitant]
     Indication: PRODUCT USED FOR UNKNOWN INDICATION
     Dosage: UNKNOWN
  16. UNSPECIFIED SEDATIVE [Suspect]
     Indication: PRODUCT USED FOR UNKNOWN INDICATION
     Dosage: UNKNOWN
  17. LISINOPRIL [Concomitant]
     Indication: HYPERTENSION
     Dosage: DAILY DOSE: 20MG
  18. ADVAIR DISKUS 100/50 [Concomitant]
     Indication: CHRONIC OBSTRUCTIVE PULMONARY DISEASE
     Dosage: UNKNOWN
  19. NICOTINE [Suspect]
  20. NORVASC [Concomitant]
     Indication: HYPERTENSION
  21. NICOTINE [Suspect]
     Indication: SMOKING CESSATION THERAPY
     Dosage: PATCH  UNKNOWN FREQUENCY, STARTED AND STOPPED 3 TIMES
     Route: 062
  22. NICOTINE [Suspect]
  23. MEPERIDINE HCL [Suspect]
     Indication: PRODUCT USED FOR UNKNOWN INDICATION
     Dosage: UNKNOWN

REACTIONS (8)
  - NAUSEA [None]
  - VOMITING [None]
  - HYPERSENSITIVITY [None]
  - RASH [None]
  - DRUG INEFFECTIVE [None]
  - CONVULSION [None]
  - TOOTH DISORDER [None]
  - MALAISE [None]
